FAERS Safety Report 23908222 (Version 1)
Quarter: 2024Q2

REPORT INFORMATION
  Report Type: Spontaneous
  Country: GB (occurrence: GB)
  Receive Date: 20240528
  Receipt Date: 20240528
  Transmission Date: 20240716
  Serious: Yes (Other)
  Sender: FDA-Public Use
  Company Number: GB-MHRA-TPP21063381C3779448YC1715617769562

PATIENT
  Age: 76 Year
  Sex: Female
  Weight: 99 kg

DRUGS (10)
  1. CIPROFLOXACIN [Suspect]
     Active Substance: CIPROFLOXACIN
     Indication: Product used for unknown indication
     Dosage: 2 MILLIGRAM PER MILLILITRE
     Route: 065
  2. APIXABAN [Concomitant]
     Active Substance: APIXABAN
     Indication: Product used for unknown indication
     Dosage: 1 DOSAGE FORM, TWO TIMES A DAY (TAKE ONE AT 8AM AND ONE AT 10PM)
     Route: 065
     Dates: start: 20230707
  3. ATORVASTATIN [Concomitant]
     Active Substance: ATORVASTATIN
     Indication: Product used for unknown indication
     Dosage: 1 DOSAGE FORM, ONCE A DAY (ONE TO BE TAKEN AT 10PM)
     Route: 065
     Dates: start: 20230707
  4. BENDROFLUMETHIAZIDE [Concomitant]
     Active Substance: BENDROFLUMETHIAZIDE
     Indication: Product used for unknown indication
     Dosage: 1 DOSAGE FORM, ONCE A DAY (ONE TO BE TAKEN AT 8AM)
     Route: 065
     Dates: start: 20230707
  5. CIPROFLOXACIN [Concomitant]
     Active Substance: CIPROFLOXACIN
     Indication: Product used for unknown indication
     Dosage: 1 DOSAGE FORM, TWO TIMES A DAY
     Route: 065
     Dates: start: 20240508, end: 20240513
  6. NITROGLYCERIN [Concomitant]
     Active Substance: NITROGLYCERIN
     Indication: Product used for unknown indication
     Dosage: UNK (USE ONE TO TWO SPRAYS UNDER THE TONGUE WHEN REQ...)
     Route: 060
     Dates: start: 20230707
  7. LOSARTAN [Concomitant]
     Active Substance: LOSARTAN
     Indication: Product used for unknown indication
     Dosage: 1 DOSAGE FORM, ONCE A DAY (TAKE ONE AT 8AM)
     Route: 065
     Dates: start: 20230707
  8. METRONIDAZOLE [Concomitant]
     Active Substance: METRONIDAZOLE
     Indication: Product used for unknown indication
     Dosage: 1 DOSAGE FORM, 3 TIMES A DAY (TO TRE...)
     Route: 065
     Dates: start: 20240508, end: 20240513
  9. ACETAMINOPHEN [Concomitant]
     Active Substance: ACETAMINOPHEN
     Indication: Product used for unknown indication
     Dosage: 2 DOSAGE FORM, FOUR TIMES/DAY (WHEN REQUIRED - ...  )
     Route: 065
     Dates: start: 20231206
  10. CHOLECALCIFEROL [Concomitant]
     Active Substance: CHOLECALCIFEROL
     Indication: Product used for unknown indication
     Dosage: 1 DOSAGE FORM, ONCE A DAY
     Route: 065
     Dates: start: 20230707

REACTIONS (3)
  - Rash [Unknown]
  - Pruritus [Recovered/Resolved]
  - Paraesthesia oral [Recovered/Resolved]
